FAERS Safety Report 5995104-6 (Version None)
Quarter: 2008Q4

REPORT INFORMATION
  Report Type: 
  Country: None (occurrence: None)
  Receive Date: 20081212
  Receipt Date: 20081204
  Transmission Date: 20090506
  Serious: Yes (Other)
  Sender: FDA-Public Use
  Company Number: FR-PFIZER INC-2008151576

PATIENT

DRUGS (7)
  1. AMLOD [Suspect]
     Dosage: 5 MG, UNK
     Dates: start: 20080811, end: 20080816
  2. AMLOD [Suspect]
     Dosage: 10 MG, UNK
     Dates: start: 20080817, end: 20081201
  3. PLAVIX [Concomitant]
     Dosage: UNK
  4. CELIPROLOL HYDROCHLORIDE [Concomitant]
     Dosage: UNK
  5. ZOCOR [Concomitant]
     Dosage: UNK
  6. LEVOTHYROX [Concomitant]
     Dosage: UNK
  7. BUMETANIDE [Concomitant]
     Dosage: UNK

REACTIONS (2)
  - AORTIC ANEURYSM [None]
  - CONDITION AGGRAVATED [None]
